FAERS Safety Report 5479479-2 (Version None)
Quarter: 2007Q4

REPORT INFORMATION
  Report Type: 
  Country: None (occurrence: None)
  Receive Date: 20071008
  Receipt Date: 20071004
  Transmission Date: 20080405
  Serious: Yes (Other)
  Sender: FDA-Public Use
  Company Number: US-ASTRAZENECA-2007UW21808

PATIENT

DRUGS (3)
  1. FASLODEX [Suspect]
     Route: 030
     Dates: start: 20070829
  2. FASLODEX [Suspect]
     Route: 030
     Dates: start: 20070912
  3. FASLODEX [Suspect]
     Route: 030

REACTIONS (3)
  - INCORRECT DOSE ADMINISTERED [None]
  - LYMPHADENOPATHY [None]
  - OVERDOSE [None]
